FAERS Safety Report 9658094 (Version 3)
Quarter: 2013Q4

REPORT INFORMATION
  Report Type: Spontaneous
  Country: FR (occurrence: FR)
  Receive Date: 20131030
  Receipt Date: 20131105
  Transmission Date: 20140711
  Serious: Yes (Death)
  Sender: FDA-Public Use
  Company Number: PHHY2013FR049948

PATIENT
  Age: 77 Year
  Sex: Male

DRUGS (9)
  1. CUBICIN [Suspect]
     Indication: DEVICE RELATED INFECTION
     Dosage: 6 MG/KG, QD (450 MG)
     Route: 042
     Dates: start: 20130405
  2. CUBICIN [Suspect]
     Indication: OFF LABEL USE
  3. CUBICIN [Suspect]
     Indication: STAPHYLOCOCCAL SEPSIS
  4. RIFAMPICIN [Suspect]
     Indication: STAPHYLOCOCCAL SEPSIS
     Dosage: 600 MG, BID
     Route: 042
     Dates: start: 20130404
  5. CHEMOTHERAPEUTICS [Concomitant]
     Indication: PANCREATIC CARCINOMA
  6. AMIODARONE [Concomitant]
  7. FLAGYL [Concomitant]
     Indication: SPONDYLITIS
     Dosage: 500 MG, TID
     Route: 042
     Dates: start: 20130404
  8. PARACETAMOL [Concomitant]
  9. ZYVOXID [Concomitant]
     Indication: SEPSIS
     Dosage: 600 MG, BID
     Route: 042
     Dates: start: 20130404

REACTIONS (9)
  - Encephalopathy [Fatal]
  - Jaundice [Fatal]
  - Ascites [Fatal]
  - Mental status changes [Fatal]
  - Fatigue [Fatal]
  - Nausea [Fatal]
  - Decreased appetite [Fatal]
  - Malaise [Fatal]
  - Hepatitis fulminant [Fatal]
